FAERS Safety Report 5524022-2 (Version None)
Quarter: 2007Q4

REPORT INFORMATION
  Report Type: 
  Country: None (occurrence: None)
  Receive Date: 20071121
  Receipt Date: 20071116
  Transmission Date: 20080405
  Serious: Yes (Disabling)
  Sender: FDA-Public Use
  Company Number: GB-BOEHRINGER INGELHEIM PHARMACEUTICALS, INC.-2007-UK-03659UK

PATIENT
  Age: 82 Year
  Sex: Female
  Weight: 89.8 kg

DRUGS (6)
  1. TIOTROPIUM (00015/0190/A) [Suspect]
     Indication: CHRONIC OBSTRUCTIVE PULMONARY DISEASE
     Route: 055
     Dates: start: 20071001, end: 20071022
  2. FLUTICASONE PROPIONATE [Concomitant]
     Indication: CHRONIC OBSTRUCTIVE PULMONARY DISEASE
     Route: 055
     Dates: start: 20070815
  3. GLUCOSAMINE [Concomitant]
     Indication: ARTHRITIS
     Route: 048
     Dates: start: 20071009
  4. LISINOPRIL [Concomitant]
     Indication: HYPERTENSION
     Route: 048
     Dates: start: 20040817
  5. OMEPRAZOLE [Concomitant]
     Indication: DYSPEPSIA
     Route: 048
  6. PARACETAMOL [Concomitant]
     Indication: ARTHRITIS
     Route: 048
     Dates: start: 20050413

REACTIONS (2)
  - DEPRESSION [None]
  - SOCIAL AVOIDANT BEHAVIOUR [None]
